FAERS Safety Report 15880254 (Version 1)
Quarter: 2019Q1

REPORT INFORMATION
  Report Type: Spontaneous
  Country: US (occurrence: US)
  Receive Date: 20190128
  Receipt Date: 20190128
  Transmission Date: 20190417
  Serious: Yes (Death)
  Sender: FDA-Public Use
  Company Number: US-PERRIGO-19US000978

PATIENT
  Age: 53 Year
  Sex: Female

DRUGS (10)
  1. LORAZEPAM. [Suspect]
     Active Substance: LORAZEPAM
     Indication: COMPLETED SUICIDE
     Dosage: UNK
     Route: 048
  2. BUPROPION. [Suspect]
     Active Substance: BUPROPION
     Indication: COMPLETED SUICIDE
     Dosage: UNK
     Route: 048
  3. CYCLOBENZAPRINE. [Suspect]
     Active Substance: CYCLOBENZAPRINE
     Indication: COMPLETED SUICIDE
     Dosage: UNK
     Route: 048
  4. HYDROCHLOROTHIAZIDE W/TRIAMTERENE [Suspect]
     Active Substance: HYDROCHLOROTHIAZIDE\TRIAMTERENE
     Indication: COMPLETED SUICIDE
     Dosage: UNK
     Route: 048
  5. IBUPROFEN. [Suspect]
     Active Substance: IBUPROFEN
     Indication: COMPLETED SUICIDE
     Dosage: UNK
     Route: 048
  6. SALICYLATES NOS [Suspect]
     Active Substance: UNSPECIFIED INGREDIENT
     Indication: COMPLETED SUICIDE
     Dosage: UNK
     Route: 048
  7. METFORMIN [Suspect]
     Active Substance: METFORMIN HYDROCHLORIDE
     Indication: COMPLETED SUICIDE
     Dosage: UNK
     Route: 048
  8. ACETAMINOPHEN. [Suspect]
     Active Substance: ACETAMINOPHEN
     Indication: COMPLETED SUICIDE
     Dosage: UNK
     Route: 048
  9. OLANZAPINE. [Suspect]
     Active Substance: OLANZAPINE
     Indication: COMPLETED SUICIDE
     Dosage: UNK
     Route: 048
  10. CHLORTHALIDONE. [Suspect]
     Active Substance: CHLORTHALIDONE
     Indication: COMPLETED SUICIDE
     Dosage: UNK
     Route: 048

REACTIONS (1)
  - Death [Fatal]
